FAERS Safety Report 13011792 (Version 1)
Quarter: 2016Q4

REPORT INFORMATION
  Report Type: Spontaneous
  Country: US (occurrence: US)
  Receive Date: 20161209
  Receipt Date: 20161209
  Transmission Date: 20170207
  Serious: No
  Sender: FDA-Public Use
  Company Number: US-BIOGEN-2016BI00325612

PATIENT
  Sex: Female

DRUGS (2)
  1. TECFIDERA [Suspect]
     Active Substance: DIMETHYL FUMARATE
     Dosage: MAINTENANCE DOSE
     Route: 048
  2. TECFIDERA [Suspect]
     Active Substance: DIMETHYL FUMARATE
     Indication: MULTIPLE SCLEROSIS
     Dosage: STARTING DOSE
     Route: 048

REACTIONS (10)
  - Central nervous system lesion [Unknown]
  - Blood cholesterol increased [Not Recovered/Not Resolved]
  - Blood glucose increased [Recovered/Resolved]
  - Multiple sclerosis relapse [Recovered/Resolved]
  - Skin burning sensation [Recovered/Resolved]
  - Fibromyalgia [Not Recovered/Not Resolved]
  - Nausea [Recovered/Resolved]
  - Rash [Recovered/Resolved]
  - Gastritis [Not Recovered/Not Resolved]
  - Hernia [Not Recovered/Not Resolved]
